FAERS Safety Report 10770646 (Version 4)
Quarter: 2015Q3

REPORT INFORMATION
  Report Type: Report from Study
  Country: JP (occurrence: JP)
  Receive Date: 20150206
  Receipt Date: 20150720
  Transmission Date: 20151125
  Serious: Yes (Death, Hospitalization)
  Sender: FDA-Public Use
  Company Number: JP-B.I. PHARMACEUTICALS,INC./RIDGEFIELD-2015-BI-06347NB

PATIENT
  Age: 83 Year
  Sex: Male
  Weight: 51 kg

DRUGS (10)
  1. CLEANAL [Concomitant]
     Active Substance: FUDOSTEINE
     Indication: LUNG ADENOCARCINOMA
     Dosage: 1200 MG
     Route: 048
     Dates: end: 20150122
  2. BROMHEXINE HYDROCHLORIDE [Concomitant]
     Active Substance: BROMHEXINE HYDROCHLORIDE
     Indication: LUNG ADENOCARCINOMA
     Dosage: 12 MG
     Route: 048
     Dates: end: 20150122
  3. ANPLAG [Concomitant]
     Active Substance: SARPOGRELATE
     Indication: PRODUCT USED FOR UNKNOWN INDICATION
     Dosage: 200 MG
     Route: 048
     Dates: end: 20150122
  4. LIVALO [Concomitant]
     Active Substance: PITAVASTATIN CALCIUM
     Indication: PRODUCT USED FOR UNKNOWN INDICATION
     Dosage: 1 MG
     Route: 048
     Dates: end: 20150122
  5. CLARITH [Concomitant]
     Active Substance: CLARITHROMYCIN
     Indication: LUNG ADENOCARCINOMA
     Dosage: 400 MG
     Route: 048
     Dates: end: 20150122
  6. AMARYL [Concomitant]
     Active Substance: GLIMEPIRIDE
     Indication: PRODUCT USED FOR UNKNOWN INDICATION
     Dosage: 1 MG
     Route: 048
     Dates: end: 20150122
  7. MUCOSOLVAN L [Concomitant]
     Active Substance: AMBROXOL HYDROCHLORIDE
     Indication: LUNG ADENOCARCINOMA
     Dosage: 45 MG
     Route: 048
     Dates: end: 20150122
  8. GILOTRIF [Suspect]
     Active Substance: AFATINIB
     Indication: LUNG ADENOCARCINOMA
     Dosage: 30 MG
     Route: 065
     Dates: start: 20150113, end: 20150122
  9. WARFARIN [Suspect]
     Active Substance: WARFARIN
     Dosage: 0.5 MG
     Route: 048
     Dates: start: 20150107, end: 20150122
  10. WARFARIN [Suspect]
     Active Substance: WARFARIN
     Indication: ARRHYTHMIA
     Dosage: 1 MG
     Route: 048
     Dates: end: 20150106

REACTIONS (4)
  - Lymphangiosis carcinomatosa [Fatal]
  - Gastric mucosal lesion [Not Recovered/Not Resolved]
  - Arrhythmia [Not Recovered/Not Resolved]
  - Dyspnoea [Fatal]

NARRATIVE: CASE EVENT DATE: 20150122
